FAERS Safety Report 19675421 (Version 2)
Quarter: 2022Q4

REPORT INFORMATION
  Report Type: Spontaneous
  Country: US (occurrence: US)
  Receive Date: 20210809
  Receipt Date: 20221004
  Transmission Date: 20230113
  Serious: Yes (Death, Other)
  Sender: FDA-Public Use
  Company Number: US-SA-SAC20210805000439

PATIENT
  Age: 59 Year
  Sex: Male

DRUGS (1)
  1. ZANTAC [Suspect]
     Active Substance: RANITIDINE HYDROCHLORIDE
     Indication: Abdominal discomfort
     Dosage: UNK, QD,OTHER
     Dates: start: 201101, end: 202001

REACTIONS (2)
  - Colorectal cancer [Fatal]
  - Bladder cancer [Fatal]

NARRATIVE: CASE EVENT DATE: 20150101
